FAERS Safety Report 4641554-X (Version None)
Quarter: 2005Q2

REPORT INFORMATION
  Report Type: 
  Country: None (occurrence: None)
  Receive Date: 20050421
  Receipt Date: 20050408
  Transmission Date: 20051028
  Serious: Yes (Disabling)
  Sender: FDA-Public Use
  Company Number: FRWYE561106APR05

PATIENT
  Age: 64 Year
  Sex: Female

DRUGS (2)
  1. ENBREL [Suspect]
     Indication: RHEUMATOID ARTHRITIS
     Route: 058
     Dates: start: 20040701
  2. CORTANCYL [Concomitant]
     Route: 048

REACTIONS (3)
  - AMNESIA [None]
  - CONDITION AGGRAVATED [None]
  - DYSPRAXIA [None]
